FAERS Safety Report 5471060-4 (Version None)
Quarter: 2007Q3

REPORT INFORMATION
  Report Type: 
  Country: None (occurrence: None)
  Receive Date: 20070928
  Receipt Date: 20070330
  Transmission Date: 20080115
  Serious: No
  Sender: FDA-Public Use
  Company Number: A0645639A

PATIENT
  Sex: Female

DRUGS (1)
  1. LAMICTAL [Suspect]
     Dosage: 150MG UNKNOWN
     Route: 048

REACTIONS (4)
  - DYSGEUSIA [None]
  - DYSPHAGIA [None]
  - RETCHING [None]
  - VOMITING [None]
